FAERS Safety Report 4668442-7 (Version None)
Quarter: 2005Q2

REPORT INFORMATION
  Report Type: 
  Country: None (occurrence: None)
  Receive Date: 20050518
  Receipt Date: 20050506
  Transmission Date: 20051028
  Serious: Yes (Death, Hospitalization)
  Sender: FDA-Public Use
  Company Number: B0379691A

PATIENT
  Age: 63 Year
  Sex: Female

DRUGS (1)
  1. ZANTAC 150 [Suspect]
     Indication: GASTRIC ULCER
     Dosage: 150 MG/
     Dates: start: 20050425, end: 20050425

REACTIONS (3)
  - ASTHENIA [None]
  - DIARRHOEA [None]
  - VOMITING [None]
